FAERS Safety Report 6142668-8 (Version None)
Quarter: 2009Q2

REPORT INFORMATION
  Report Type: 
  Country: None (occurrence: None)
  Receive Date: 20090403
  Receipt Date: 20090401
  Transmission Date: 20091009
  Serious: Yes (Hospitalization)
  Sender: FDA-Public Use
  Company Number: IT-BAYER-200917613GPV

PATIENT
  Age: 76 Year
  Sex: Male

DRUGS (2)
  1. ASPIRIN [Suspect]
     Indication: MYOCARDIAL ISCHAEMIA
     Dosage: TOTAL DAILY DOSE: 100 MG  UNIT DOSE: 100 MG
     Route: 048
     Dates: start: 19970330
  2. KETOROLAC TROMETHAMINE [Suspect]
     Indication: ABDOMINAL PAIN
     Route: 030
     Dates: start: 20090323, end: 20090330

REACTIONS (3)
  - DUODENAL ULCER [None]
  - HAEMORRHAGE [None]
  - PRESYNCOPE [None]
